FAERS Safety Report 8506809-7 (Version None)
Quarter: 2012Q3

REPORT INFORMATION
  Report Type: 
  Country: None (occurrence: None)
  Receive Date: 20120712
  Receipt Date: 20120709
  Transmission Date: 20120928
  Serious: No
  Sender: FDA-Public Use
  Company Number: US-BAYER-2012-069404

PATIENT
  Age: 88 Year
  Sex: Female
  Weight: 61 kg

DRUGS (2)
  1. ANTIHYPERTENSIVES [Concomitant]
  2. ALEVE (CAPLET) [Suspect]
     Indication: BACK PAIN
     Dosage: 1 TAB ONCE DAILY
     Route: 048
     Dates: start: 20120707, end: 20120709

REACTIONS (2)
  - DIZZINESS [None]
  - MALAISE [None]
